FAERS Safety Report 20916887 (Version 1)
Quarter: 2022Q2

REPORT INFORMATION
  Report Type: Spontaneous
  Country: None (occurrence: CN)
  Receive Date: 20220605
  Receipt Date: 20220605
  Transmission Date: 20220720
  Serious: Yes (Hospitalization)
  Sender: FDA-Public Use
  Company Number: CN-Jiangsu Hengrui Medicine Co., Ltd.-2129489

PATIENT
  Age: 4 Year
  Sex: Male
  Weight: 16 kg

DRUGS (6)
  1. IRINOTECAN HYDROCHLORIDE [Suspect]
     Active Substance: IRINOTECAN HYDROCHLORIDE
     Indication: Acute lymphocytic leukaemia
     Route: 041
     Dates: start: 20220430
  2. VINCRISTINE SULFATE [Suspect]
     Active Substance: VINCRISTINE SULFATE
     Route: 041
     Dates: start: 20220430
  3. IDARUBICIN [Suspect]
     Active Substance: IDARUBICIN
     Route: 041
     Dates: start: 20220430
  4. PEGASPARGASE [Suspect]
     Active Substance: PEGASPARGASE
     Route: 030
     Dates: start: 20220501
  5. CYTARABINE HYDROCHLORIDE [Suspect]
     Active Substance: CYTARABINE HYDROCHLORIDE
     Dates: start: 20220505, end: 20220505
  6. METHOTREXATE [Suspect]
     Active Substance: METHOTREXATE
     Dates: start: 20220505, end: 20220505

REACTIONS (6)
  - Nausea [Recovered/Resolved]
  - Vomiting [Recovered/Resolved]
  - Dysphagia [Recovering/Resolving]
  - Abdominal distension [Recovered/Resolved]
  - Myelosuppression [Recovering/Resolving]
  - Pyrexia [Recovered/Resolved]

NARRATIVE: CASE EVENT DATE: 20220501
